FAERS Safety Report 22304811 (Version 6)
Quarter: 2025Q3

REPORT INFORMATION
  Report Type: Spontaneous
  Country: US (occurrence: US)
  Receive Date: 20230510
  Receipt Date: 20250814
  Transmission Date: 20251021
  Serious: Yes (Other)
  Sender: PFIZER
  Company Number: US-PFIZER INC-PV202200120833

PATIENT
  Age: 84 Year
  Sex: Female
  Weight: 45.351 kg

DRUGS (3)
  1. IBRANCE [Suspect]
     Active Substance: PALBOCICLIB
     Indication: Breast cancer female
     Dates: start: 20220701
  2. IBRANCE [Suspect]
     Active Substance: PALBOCICLIB
     Dates: start: 20220811
  3. IBRANCE [Suspect]
     Active Substance: PALBOCICLIB
     Route: 048
     Dates: start: 20221215

REACTIONS (4)
  - Neutropenia [Unknown]
  - Full blood count abnormal [Unknown]
  - Pharyngeal disorder [Unknown]
  - Malaise [Unknown]
